FAERS Safety Report 5612554-8 (Version None)
Quarter: 2008Q1

REPORT INFORMATION
  Report Type: 
  Country: None (occurrence: None)
  Receive Date: 20080204
  Receipt Date: 20080125
  Transmission Date: 20080703
  Serious: Yes (Other)
  Sender: FDA-Public Use
  Company Number: US-JNJFOC-20080106859

PATIENT
  Age: 50 Year
  Sex: Female
  Weight: 80.29 kg

DRUGS (4)
  1. TYLENOL COLD HEAD CONGESTION DAYTIME COOL BURST [Suspect]
     Indication: NASOPHARYNGITIS
     Route: 048
  2. TYLENOL COLD HEAD CONGESTION DAYTIME COOL BURST [Suspect]
     Indication: SINUS CONGESTION
     Dosage: 6 CAPLETS EVERY 4-6 HOURS
     Route: 048
  3. TYLENOL COLD HEAD CONGESTION NIGHTTIME COOL BURST [Suspect]
     Indication: NASOPHARYNGITIS
     Route: 048
  4. TYLENOL COLD HEAD CONGESTION NIGHTTIME COOL BURST [Suspect]
     Indication: SINUS CONGESTION
     Dosage: 4 CAPLETS EVERY 4-6 HOURS
     Route: 048

REACTIONS (3)
  - HALLUCINATION [None]
  - SLEEP DISORDER [None]
  - SPEECH DISORDER [None]
